FAERS Safety Report 6269838-2 (Version None)
Quarter: 2009Q3

REPORT INFORMATION
  Report Type: 
  Country: None (occurrence: None)
  Receive Date: 20090716
  Receipt Date: 20090704
  Transmission Date: 20100115
  Serious: Yes (Other)
  Sender: FDA-Public Use
  Company Number: IT-JNJFOC-20090702207

PATIENT
  Age: 52 Year
  Sex: Female

DRUGS (4)
  1. INFLIXIMAB [Suspect]
     Indication: RHEUMATOID ARTHRITIS
     Dosage: 27 INFUSIONS OVER 43 MONTHS
     Route: 042
  2. PREDNISONE TAB [Concomitant]
  3. METHOTREXATE [Concomitant]
  4. NSAIDS [Concomitant]

REACTIONS (3)
  - DRUG INEFFECTIVE [None]
  - INFUSION RELATED REACTION [None]
  - VENTRICULAR EXTRASYSTOLES [None]
